FAERS Safety Report 4409957-6 (Version None)
Quarter: 2004Q3

REPORT INFORMATION
  Report Type: 
  Country: None (occurrence: None)
  Receive Date: 20040726
  Receipt Date: 20040716
  Transmission Date: 20050211
  Serious: Yes (Death)
  Sender: FDA-Public Use
  Company Number: J081-002-001707

PATIENT
  Age: 82 Year
  Sex: Male

DRUGS (6)
  1. ARICEPT [Suspect]
     Indication: DEMENTIA
     Dosage: 3 MG, 1 IN 1 D, ORAL
     Route: 048
     Dates: start: 20011025
  2. NORVASC [Suspect]
     Dosage: 5 MG,  ORAL
     Route: 048
  3. VOLTAREN [Suspect]
     Dates: start: 20011025
  4. KUREMEZIN (SPHERICAL CARBONACEOUS ABSORBENT) [Suspect]
     Dosage: ORAL
     Route: 048
     Dates: start: 20011025
  5. HARNAL (TAMSULOSIN HYDROCHLORIDE) [Suspect]
     Dosage: ORAL
     Route: 048
  6. ALOSENN (SENNA LEAF/ SENNA POD) [Suspect]
     Dosage: ORAL
     Route: 048

REACTIONS (5)
  - CONDITION AGGRAVATED [None]
  - DEMENTIA [None]
  - GASTROINTESTINAL HAEMORRHAGE [None]
  - PYREXIA [None]
  - RENAL FAILURE [None]
